FAERS Safety Report 20112236 (Version 1)
Quarter: 2021Q4

REPORT INFORMATION
  Report Type: Spontaneous
  Country: BR (occurrence: BR)
  Receive Date: 20211125
  Receipt Date: 20211125
  Transmission Date: 20220303
  Serious: Yes (Hospitalization, Other)
  Sender: FDA-Public Use
  Company Number: BR-ABBOTT-2021A-1332204

PATIENT
  Sex: Male
  Weight: 68 kg

DRUGS (1)
  1. DEPAKOTE ER [Suspect]
     Active Substance: DIVALPROEX SODIUM
     Indication: Seizure
     Dosage: DD: 750MG
     Route: 048
     Dates: start: 2016

REACTIONS (5)
  - Extra dose administered [Unknown]
  - Acne [Unknown]
  - Inappropriate schedule of product administration [Unknown]
  - Pneumonia [Unknown]
  - Seizure [Recovered/Resolved]
